FAERS Safety Report 9102904 (Version 2)
Quarter: 2014Q1

REPORT INFORMATION
  Report Type: Spontaneous
  Country: US (occurrence: US)
  Receive Date: 20130219
  Receipt Date: 20140207
  Transmission Date: 20141002
  Serious: Yes (Other)
  Sender: FDA-Public Use
  Company Number: US-PFIZER INC-2013060879

PATIENT
  Age: 66 Year
  Sex: Female
  Weight: 72.56 kg

DRUGS (4)
  1. ENBREL [Suspect]
     Indication: PSORIATIC ARTHROPATHY
     Dosage: 25 MG, 2X/WEEK
     Dates: start: 2007
  2. LYRICA [Suspect]
     Indication: FIBROMYALGIA
     Dosage: 25 MG, 1X/DAY
     Route: 048
     Dates: start: 2007
  3. ARTHROTEC [Suspect]
     Indication: PSORIATIC ARTHROPATHY
     Dosage: 200MCG/75MG, 2X/DAY
     Route: 048
  4. CALCIUM [Concomitant]
     Dosage: UNK

REACTIONS (4)
  - Muscle rupture [Unknown]
  - Muscle disorder [Unknown]
  - Fibromyalgia [Unknown]
  - Myalgia [Unknown]
